FAERS Safety Report 5135390-8 (Version None)
Quarter: 2006Q4

REPORT INFORMATION
  Report Type: 
  Country: None (occurrence: None)
  Receive Date: 20061026
  Receipt Date: 20061023
  Transmission Date: 20070319
  Serious: Yes (Hospitalization)
  Sender: FDA-Public Use
  Company Number: AU-BRISTOL-MYERS SQUIBB COMPANY-13553219

PATIENT
  Age: 71 Year
  Sex: Female

DRUGS (5)
  1. IRBESARTAN [Suspect]
     Dates: end: 20040801
  2. SPIRONOLACTONE [Suspect]
     Route: 048
     Dates: end: 20040801
  3. DIGOXIN [Suspect]
  4. FUROSEMIDE [Suspect]
     Dates: end: 20040801
  5. GLICLAZIDE [Suspect]
     Route: 048
     Dates: end: 20040801

REACTIONS (3)
  - DEHYDRATION [None]
  - RENAL FAILURE ACUTE [None]
  - THERAPEUTIC AGENT TOXICITY [None]
